FAERS Safety Report 11612227 (Version 4)
Quarter: 2018Q4

REPORT INFORMATION
  Report Type: Spontaneous
  Country: US (occurrence: US)
  Receive Date: 20151008
  Receipt Date: 20181112
  Transmission Date: 20190204
  Serious: No
  Sender: FDA-Public Use
  Company Number: US-GLAXOSMITHKLINE-US2015GSK139690

PATIENT
  Age: 76 Year
  Sex: Female

DRUGS (2)
  1. LOVAZA [Suspect]
     Active Substance: OMEGA-3-ACID ETHYL ESTERS
     Indication: BLOOD CHOLESTEROL ABNORMAL
  2. ADVAIR DISKUS [Suspect]
     Active Substance: FLUTICASONE PROPIONATE\SALMETEROL XINAFOATE
     Indication: CHRONIC OBSTRUCTIVE PULMONARY DISEASE

REACTIONS (9)
  - Product dose omission [Unknown]
  - Upper respiratory tract infection [Recovered/Resolved]
  - Muscle strain [Unknown]
  - Blood iron decreased [Unknown]
  - Limb injury [Unknown]
  - Malaise [Unknown]
  - Fall [Unknown]
  - Balance disorder [Recovering/Resolving]
  - Urinary tract infection [Unknown]

NARRATIVE: CASE EVENT DATE: 201411
